FAERS Safety Report 6530889-1 (Version None)
Quarter: 2010Q1

REPORT INFORMATION
  Report Type: 
  Country: None (occurrence: None)
  Receive Date: 20100108
  Receipt Date: 20090508
  Transmission Date: 20100710
  Serious: No
  Sender: FDA-Public Use
  Company Number: A0783228A

PATIENT
  Age: 73 Year
  Sex: Female

DRUGS (9)
  1. LOVAZA [Suspect]
     Dosage: 4G PER DAY
     Route: 048
     Dates: start: 20080801
  2. SYNTHROID [Concomitant]
  3. TRIAMTERENE AND HYDROCHLOROTHIAZIDE [Concomitant]
  4. ZOLOFT [Concomitant]
  5. PREVACID [Concomitant]
  6. AMITRIPTYLINE HCL [Concomitant]
  7. FOLIC ACID [Concomitant]
  8. TYLENOL (CAPLET) [Concomitant]
  9. VITAMIN B-12 [Concomitant]

REACTIONS (3)
  - CONSTIPATION [None]
  - MUSCULOSKELETAL STIFFNESS [None]
  - MYALGIA [None]
